FAERS Safety Report 6490539-X (Version None)
Quarter: 2009Q4

REPORT INFORMATION
  Report Type: 
  Country: None (occurrence: None)
  Receive Date: 20091211
  Receipt Date: 20091203
  Transmission Date: 20100525
  Serious: Yes (Other)
  Sender: FDA-Public Use
  Company Number: BR-PFIZER INC-2009251037

PATIENT
  Age: 29 Year
  Sex: Male

DRUGS (1)
  1. CHAMPIX [Suspect]
     Indication: TOBACCO USER
     Dosage: 1 TABLET, 1X/DAY
     Route: 048
     Dates: start: 20090712, end: 20090701

REACTIONS (2)
  - HYPERSENSITIVITY [None]
  - RASH MACULAR [None]
